FAERS Safety Report 4794278-2 (Version None)
Quarter: 2005Q4

REPORT INFORMATION
  Report Type: 
  Country: None (occurrence: None)
  Receive Date: 20051011
  Receipt Date: 20050929
  Transmission Date: 20060501
  Serious: Yes (Other)
  Sender: FDA-Public Use
  Company Number: US-GLAXOSMITHKLINE-B0395686A

PATIENT

DRUGS (2)
  1. TOPOTECAN [Suspect]
     Indication: NEOPLASM MALIGNANT
     Dosage: .4MGM2 PER DAY
     Route: 048
  2. DOXIL [Suspect]
     Indication: NEOPLASM MALIGNANT
     Dosage: 30MGM2 PER DAY
     Route: 042

REACTIONS (6)
  - DIARRHOEA [None]
  - NAUSEA [None]
  - NEUTROPENIA [None]
  - RENAL FAILURE [None]
  - SEPSIS [None]
  - VOMITING [None]
